FAERS Safety Report 6957089-5 (Version None)
Quarter: 2010Q3

REPORT INFORMATION
  Report Type: 
  Country: None (occurrence: None)
  Receive Date: 20100831
  Receipt Date: 20100820
  Transmission Date: 20110219
  Serious: No
  Sender: FDA-Public Use
  Company Number: US-BIOGENIDEC-2010BI011550

PATIENT
  Age: 57 Year
  Sex: Female

DRUGS (1)
  1. TYSABRI [Suspect]
     Indication: MULTIPLE SCLEROSIS
     Route: 042
     Dates: start: 20080827

REACTIONS (7)
  - COGNITIVE DISORDER [None]
  - LOSS OF CONTROL OF LEGS [None]
  - MUSCULAR WEAKNESS [None]
  - PERONEAL NERVE PALSY [None]
  - POLLAKIURIA [None]
  - URINARY RETENTION [None]
  - URINARY TRACT INFECTION [None]
